FAERS Safety Report 15166112 (Version 1)
Quarter: 2018Q3

REPORT INFORMATION
  Report Type: Spontaneous
  Country: US (occurrence: US)
  Receive Date: 20180719
  Receipt Date: 20180719
  Transmission Date: 20181010
  Serious: Yes (Hospitalization)
  Sender: FDA-Public Use
  Company Number: US-PERRIGO-18US007112

PATIENT
  Age: 63 Year
  Sex: Male
  Weight: 77.98 kg

DRUGS (1)
  1. MINOXIDIL. [Suspect]
     Active Substance: MINOXIDIL
     Indication: ALOPECIA
     Dosage: UNKNOWN, BID
     Route: 061
     Dates: start: 201804, end: 201805

REACTIONS (5)
  - Depression [Not Recovered/Not Resolved]
  - Swelling face [Recovered/Resolved]
  - Vertigo [Recovered/Resolved]
  - Deafness unilateral [Recovering/Resolving]
  - Inner ear inflammation [Unknown]

NARRATIVE: CASE EVENT DATE: 201804
